FAERS Safety Report 18147931 (Version 2)
Quarter: 2020Q3

REPORT INFORMATION
  Report Type: Spontaneous
  Country: IE (occurrence: IE)
  Receive Date: 20200814
  Receipt Date: 20200909
  Transmission Date: 20201103
  Serious: Yes (Other)
  Sender: FDA-Public Use
  Company Number: IE-ROCHE-2648608

PATIENT
  Age: 52 Year
  Sex: Female

DRUGS (7)
  1. ONE ALPHA [Concomitant]
     Active Substance: ALFACALCIDOL
     Route: 048
     Dates: start: 2009
  2. CALCICHEW D3 FORTE [Concomitant]
     Active Substance: CALCIUM\CHOLECALCIFEROL
     Route: 048
     Dates: start: 2012
  3. PROGRAF [Concomitant]
     Active Substance: TACROLIMUS
     Route: 048
     Dates: start: 2011
  4. AMLODIPINE [Concomitant]
     Active Substance: AMLODIPINE BESYLATE
     Indication: HYPERTENSION
     Route: 048
     Dates: start: 2011
  5. DELTACORTRIL [Concomitant]
     Active Substance: PREDNISOLONE
     Route: 048
     Dates: start: 2019
  6. CELLCEPT [Suspect]
     Active Substance: MYCOPHENOLATE MOFETIL\MYCOPHENOLATE MOFETIL HYDROCHLORIDE
     Indication: PROPHYLAXIS AGAINST TRANSPLANT REJECTION
     Route: 048
     Dates: start: 20110524
  7. NEXIUM [Concomitant]
     Active Substance: ESOMEPRAZOLE MAGNESIUM
     Indication: HYPERCHLORHYDRIA
     Route: 048
     Dates: start: 20200217

REACTIONS (5)
  - Oral pain [Recovering/Resolving]
  - Plicated tongue [Recovering/Resolving]
  - Perforated ulcer [Recovering/Resolving]
  - Blister rupture [Recovering/Resolving]
  - Glossodynia [Recovering/Resolving]

NARRATIVE: CASE EVENT DATE: 20200710
